FAERS Safety Report 7557816-2 (Version None)
Quarter: 2011Q2

REPORT INFORMATION
  Report Type: 
  Country: None (occurrence: None)
  Receive Date: 20110620
  Receipt Date: 20110613
  Transmission Date: 20111010
  Serious: Yes (Other)
  Sender: FDA-Public Use
  Company Number: US-BRISTOL-MYERS SQUIBB COMPANY-15156722

PATIENT
  Age: 81 Year
  Sex: Male

DRUGS (12)
  1. TEMAZEPAM [Concomitant]
     Dosage: FORM CAPSULE CONVENTIONAL; AT BED TIME
     Route: 048
     Dates: start: 20050801
  2. CELEBREX [Concomitant]
     Dosage: CAPSULE CONVENTIONAL
     Route: 048
  3. LISINOPRIL [Concomitant]
     Dosage: 1/2QD,TAB 16JUN09
     Route: 048
     Dates: start: 20040101
  4. SIMVASTATIN [Concomitant]
     Dosage: AT BED TIME
     Route: 048
     Dates: start: 20090616
  5. TERBINAFINE HCL [Concomitant]
     Dates: start: 20100726
  6. WARFARIN SODIUM [Suspect]
     Indication: THROMBOSIS PROPHYLAXIS
     Dosage: INTER05-MAY-2010; 1DF=2MG TUE/4MG ALL OTHER DAYS;RESTART 24-MAY-2010;INTER 6SEP2010 4MG,07FEB11.
     Route: 048
     Dates: start: 20090911
  7. TRAMADOL HCL [Concomitant]
     Dosage: 1-2 TABLET
     Route: 048
  8. NIACIN TABS [Concomitant]
     Dosage: AT BED TIME
     Route: 048
     Dates: start: 20070101
  9. COUMADIN [Concomitant]
     Dates: start: 20090616
  10. PLACEBO [Suspect]
     Indication: THROMBOSIS PROPHYLAXIS
     Dosage: INTER ON 05-MAY-2010, RESTARTED ON 24-MAY-2010;INTER 07SEP2010 APIX AND 06SEP2010 WARF,INTR 07FEB11.
     Route: 048
     Dates: start: 20090911
  11. OMEPRAZOLE [Concomitant]
     Dosage: FORM CAPSULE DELAYED RELEASE,16JUN09
     Dates: start: 20050701
  12. VITAMIN B-12 [Concomitant]
     Dosage: FORM INJECTION
     Dates: start: 20090616

REACTIONS (1)
  - BLADDER CANCER RECURRENT [None]
